FAERS Safety Report 23654991 (Version 1)
Quarter: 2024Q1

REPORT INFORMATION
  Report Type: Spontaneous
  Country: US (occurrence: US)
  Receive Date: 20240320
  Receipt Date: 20240320
  Transmission Date: 20240410
  Serious: Yes (Other)
  Sender: FDA-Public Use
  Company Number: US-MARINUS PHARMACEUTICALS, INC.-MAR2024000051

PATIENT

DRUGS (1)
  1. ZTALMY [Suspect]
     Active Substance: GANAXOLONE
     Indication: Product used for unknown indication
     Dosage: 7.1 MILLILITER, TID
     Route: 048
     Dates: start: 2024

REACTIONS (2)
  - Change in seizure presentation [Unknown]
  - Drug ineffective [None]

NARRATIVE: CASE EVENT DATE: 20240101
